FAERS Safety Report 17897923 (Version 1)
Quarter: 2020Q2

REPORT INFORMATION
  Report Type: Spontaneous
  Country: US (occurrence: US)
  Receive Date: 20200616
  Receipt Date: 20200616
  Transmission Date: 20200714
  Serious: Yes (Life-Threatening, Hospitalization, Other)
  Sender: FDA-Public Use
  Company Number: US-ALVOGEN-2020-ALVOGEN-108577

PATIENT
  Age: 75 Year
  Sex: Female

DRUGS (5)
  1. VOLTAREN [Concomitant]
     Active Substance: DICLOFENAC SODIUM
     Indication: PRODUCT USED FOR UNKNOWN INDICATION
     Route: 061
  2. LEFLUNOMIDE. [Concomitant]
     Active Substance: LEFLUNOMIDE
     Indication: RHEUMATOID ARTHRITIS
  3. FENTANYL. [Suspect]
     Active Substance: FENTANYL
     Indication: BACK PAIN
     Dosage: EXTENDED RELEASE EVERY 72 HOURS
     Route: 062
  4. NORCO [Suspect]
     Active Substance: ACETAMINOPHEN\HYDROCODONE BITARTRATE
     Indication: BACK PAIN
     Route: 048
  5. PAMELOR [Concomitant]
     Active Substance: NORTRIPTYLINE HYDROCHLORIDE
     Indication: FIBROMYALGIA
     Dosage: AT NIGHT

REACTIONS (7)
  - Drug intolerance [Unknown]
  - Acute myocardial infarction [Recovered/Resolved]
  - Dyspepsia [Recovered/Resolved]
  - Dry mouth [Recovering/Resolving]
  - Abdominal pain [Recovered/Resolved]
  - Constipation [Recovered/Resolved]
  - Dyspnoea [Recovering/Resolving]
